FAERS Safety Report 15621411 (Version 1)
Quarter: 2018Q4

REPORT INFORMATION
  Report Type: Spontaneous
  Country: CA (occurrence: CA)
  Receive Date: 20181115
  Receipt Date: 20181115
  Transmission Date: 20190205
  Serious: Yes (Other)
  Sender: FDA-Public Use
  Company Number: CA-ICU MEDICAL, INC.-ICU2018CA00048

PATIENT

DRUGS (22)
  1. MEPERIDINE HYDROCHLORIDE INJECTION USP 300 MG/30ML (10 MG/ML) (30ML) [Suspect]
     Active Substance: MEPERIDINE HYDROCHLORIDE
     Indication: OSTEOARTHRITIS
  2. DESIPRAMINE [Concomitant]
     Active Substance: DESIPRAMINE
     Indication: PRODUCT USED FOR UNKNOWN INDICATION
     Route: 065
  3. APO-OXYCODONE/ACETAMINOPHEN [Suspect]
     Active Substance: ACETAMINOPHEN\OXYCODONE HYDROCHLORIDE
     Indication: LUMBAR RADICULOPATHY
  4. CODEINE PHOSPHATE [Suspect]
     Active Substance: CODEINE PHOSPHATE
     Indication: OSTEOARTHRITIS
  5. SIMVASTATIN. [Concomitant]
     Active Substance: SIMVASTATIN
     Indication: HYPERLIPIDAEMIA
     Route: 065
  6. CODEINE PHOSPHATE [Suspect]
     Active Substance: CODEINE PHOSPHATE
     Indication: LUMBAR RADICULOPATHY
  7. MEPERIDINE HYDROCHLORIDE INJECTION USP 300 MG/30ML (10 MG/ML) (30ML) [Suspect]
     Active Substance: MEPERIDINE HYDROCHLORIDE
     Indication: LUMBAR RADICULOPATHY
  8. APO-OXYCODONE/ACETAMINOPHEN [Suspect]
     Active Substance: ACETAMINOPHEN\OXYCODONE HYDROCHLORIDE
     Indication: OSTEOPENIA
     Route: 065
  9. AMITRIPTYLINE [Concomitant]
     Active Substance: AMITRIPTYLINE
     Indication: PRODUCT USED FOR UNKNOWN INDICATION
     Route: 065
  10. EPROSARTAN MESILATE W/HYDROCHLOROTHIAZIDE [Concomitant]
     Indication: HYPERTENSION
     Route: 065
  11. LANSOPRAZOLE. [Concomitant]
     Active Substance: LANSOPRAZOLE
     Indication: PRODUCT USED FOR UNKNOWN INDICATION
     Route: 065
  12. APO-OXYCODONE/ACETAMINOPHEN [Suspect]
     Active Substance: ACETAMINOPHEN\OXYCODONE HYDROCHLORIDE
     Indication: OSTEOARTHRITIS
  13. APO-TRAMADOL [Suspect]
     Active Substance: TRAMADOL
     Indication: OSTEOARTHRITIS
  14. ACETAMINOPHEN. [Concomitant]
     Active Substance: ACETAMINOPHEN
     Indication: LUMBAR RADICULOPATHY
     Route: 065
  15. ALENDRONATE SODIUM. [Concomitant]
     Active Substance: ALENDRONATE SODIUM
     Indication: OSTEOARTHRITIS
  16. ALENDRONATE SODIUM. [Concomitant]
     Active Substance: ALENDRONATE SODIUM
     Indication: OSTEOPENIA
     Route: 065
  17. QUINAPRIL. [Concomitant]
     Active Substance: QUINAPRIL
     Indication: HYPERTENSION
     Route: 065
  18. MEPERIDINE HYDROCHLORIDE INJECTION USP 300 MG/30ML (10 MG/ML) (30ML) [Suspect]
     Active Substance: MEPERIDINE HYDROCHLORIDE
     Indication: OSTEOPENIA
     Route: 065
  19. CODEINE PHOSPHATE [Suspect]
     Active Substance: CODEINE PHOSPHATE
     Indication: OSTEOPENIA
     Route: 065
  20. APO-TRAMADOL [Suspect]
     Active Substance: TRAMADOL
     Indication: LUMBAR RADICULOPATHY
  21. HYDROCHLOROTHIAZIDE. [Concomitant]
     Active Substance: HYDROCHLOROTHIAZIDE
     Indication: HYPERTENSION
     Route: 065
  22. APO-TRAMADOL [Suspect]
     Active Substance: TRAMADOL
     Indication: OSTEOPENIA
     Route: 065

REACTIONS (2)
  - Drug ineffective [Unknown]
  - Drug intolerance [Unknown]
